FAERS Safety Report 10005566 (Version 2)
Quarter: 2014Q1

REPORT INFORMATION
  Report Type: Spontaneous
  Country: US (occurrence: US)
  Receive Date: 20140313
  Receipt Date: 20140319
  Transmission Date: 20141002
  Serious: No
  Sender: FDA-Public Use
  Company Number: US-BIOGENIDEC-2014BI017911

PATIENT
  Age: 43 Year
  Sex: Female

DRUGS (4)
  1. TECFIDERA [Suspect]
     Indication: MULTIPLE SCLEROSIS
     Route: 048
  2. TECFIDERA [Suspect]
     Indication: MULTIPLE SCLEROSIS
     Route: 048
     Dates: start: 201401
  3. ADDERALL [Concomitant]
  4. ADDERALL XR [Concomitant]

REACTIONS (5)
  - Sinus headache [Not Recovered/Not Resolved]
  - Nasal discomfort [Unknown]
  - Flushing [Recovered/Resolved]
  - Pruritus [Recovered/Resolved]
  - Burning sensation [Unknown]
